FAERS Safety Report 20671512 (Version 1)
Quarter: 2022Q2

REPORT INFORMATION
  Report Type: Spontaneous
  Country: US (occurrence: US)
  Receive Date: 20220404
  Receipt Date: 20220404
  Transmission Date: 20220721
  Serious: Yes (Other)
  Sender: FDA-Public Use
  Company Number: US-MALLINCKRODT-T202201459

PATIENT
  Sex: Female

DRUGS (1)
  1. UVADEX [Suspect]
     Active Substance: METHOXSALEN
     Indication: Cutaneous T-cell lymphoma
     Dosage: UNK (EXTRACORPOREAL)
     Route: 050

REACTIONS (4)
  - COVID-19 [Recovering/Resolving]
  - Cutaneous T-cell lymphoma [Recovering/Resolving]
  - Condition aggravated [Recovering/Resolving]
  - Therapeutic product effect decreased [Unknown]

NARRATIVE: CASE EVENT DATE: 20220207
